FAERS Safety Report 5839421-9 (Version None)
Quarter: 2008Q3

REPORT INFORMATION
  Report Type: 
  Country: None (occurrence: None)
  Receive Date: 20080806
  Receipt Date: 20080728
  Transmission Date: 20090109
  Serious: Yes (Hospitalization)
  Sender: FDA-Public Use
  Company Number: 1-16470201/MED-08151

PATIENT
  Age: 4 Year
  Sex: Male

DRUGS (1)
  1. AMITRIPTYLINE TABLET 25 MG [Suspect]
     Dosage: 70 MG/KG, ONCE, ORAL
     Route: 048

REACTIONS (9)
  - BRADYCARDIA [None]
  - COMA [None]
  - DRUG TOXICITY [None]
  - GRAND MAL CONVULSION [None]
  - HYPOTENSION [None]
  - HYPOVENTILATION [None]
  - OVERDOSE [None]
  - VENTRICULAR FIBRILLATION [None]
  - VENTRICULAR TACHYCARDIA [None]
